FAERS Safety Report 13094409 (Version 2)
Quarter: 2017Q1

REPORT INFORMATION
  Report Type: Report from Study
  Country: CA (occurrence: CA)
  Receive Date: 20170106
  Receipt Date: 20170221
  Transmission Date: 20170428
  Serious: No
  Sender: FDA-Public Use
  Company Number: CA-BIOGEN-2017BI00339183

PATIENT
  Age: 58 Year
  Sex: Male

DRUGS (2)
  1. FAMPYRA [Suspect]
     Active Substance: DALFAMPRIDINE
     Indication: GAIT DISTURBANCE
     Route: 048
     Dates: start: 20170102, end: 20170104
  2. FAMPYRA [Suspect]
     Active Substance: DALFAMPRIDINE
     Route: 065
     Dates: start: 201512, end: 201601

REACTIONS (3)
  - Epistaxis [Recovered/Resolved]
  - Treatment failure [Unknown]
  - Muscle spasticity [Recovered/Resolved]

NARRATIVE: CASE EVENT DATE: 20170104
